FAERS Safety Report 4417058-6 (Version None)
Quarter: 2004Q2

REPORT INFORMATION
  Report Type: 
  Country: None (occurrence: None)
  Receive Date: 20040629
  Receipt Date: 20040417
  Transmission Date: 20050107
  Serious: No
  Sender: FDA-Public Use
  Company Number: US073204

PATIENT
  Age: 66 Year
  Sex: Female

DRUGS (3)
  1. ARANESP [Suspect]
     Indication: ANAEMIA OF MALIGNANT DISEASE
     Dosage: 1 IN 1
     Dates: start: 20040416
  2. DOCETAXEL [Concomitant]
  3. TRASTUZUMAB [Concomitant]

REACTIONS (4)
  - DIZZINESS [None]
  - HEART RATE IRREGULAR [None]
  - URINARY TRACT INFECTION [None]
  - URINE ODOUR ABNORMAL [None]
